FAERS Safety Report 6337768-3 (Version None)
Quarter: 2009Q3

REPORT INFORMATION
  Report Type: 
  Country: None (occurrence: None)
  Receive Date: 20090902
  Receipt Date: 20090825
  Transmission Date: 20100115
  Serious: Yes (Hospitalization)
  Sender: FDA-Public Use
  Company Number: JP-B.I. PHARMACEUTICALS,INC./RIDGEFIELD-2009-DE-05275GL

PATIENT
  Sex: Male

DRUGS (9)
  1. TELMISARTAN [Suspect]
     Indication: HYPERTENSION
     Dosage: 40 MG
     Route: 048
     Dates: start: 20090429, end: 20090618
  2. PAROXETINE HCL [Suspect]
     Indication: DEPRESSION
     Dosage: 10 MG
     Route: 048
     Dates: start: 20090608, end: 20090615
  3. CARBAMAZEPINE [Suspect]
     Indication: RESTLESSNESS
     Dosage: 200 MG
     Route: 048
     Dates: start: 20090521, end: 20090614
  4. RISPERIDONE [Suspect]
     Indication: RESTLESSNESS
     Dosage: 1 MG
     Route: 048
     Dates: start: 20090515, end: 20090621
  5. VOGLIBOSE [Suspect]
     Indication: TYPE 2 DIABETES MELLITUS
     Dosage: 0.9 MG
     Route: 048
     Dates: start: 20090515, end: 20090618
  6. NATEGLINIDE [Suspect]
     Indication: TYPE 2 DIABETES MELLITUS
     Dosage: 90 MG
     Route: 048
     Dates: start: 20090515, end: 20090618
  7. OMEPRAZOLE [Suspect]
     Indication: GASTRIC ULCER
     Dosage: 20 MG
     Route: 065
     Dates: start: 20090515, end: 20090618
  8. CLOPIDOGREL BISULFATE [Suspect]
     Indication: CEREBRAL INFARCTION
     Dosage: 75 MG
     Route: 048
     Dates: start: 20090428, end: 20090620
  9. VEGETAMIN [Suspect]
     Indication: RESTLESSNESS
     Route: 048
     Dates: start: 20090518, end: 20090621

REACTIONS (13)
  - BLOOD ALKALINE PHOSPHATASE INCREASED [None]
  - BLOOD CREATININE INCREASED [None]
  - BLOOD UREA INCREASED [None]
  - ERYTHEMA [None]
  - GAMMA-GLUTAMYLTRANSFERASE INCREASED [None]
  - GENITAL EROSION [None]
  - HEPATITIS CHOLESTATIC [None]
  - LIP EROSION [None]
  - LIVER DISORDER [None]
  - PLATELET COUNT DECREASED [None]
  - RASH [None]
  - RENAL IMPAIRMENT [None]
  - STEVENS-JOHNSON SYNDROME [None]
